FAERS Safety Report 8952272 (Version 1)
Quarter: 2012Q4

REPORT INFORMATION
  Report Type: 
  Country: US (occurrence: US)
  Receive Date: 20121205
  Receipt Date: 20121205
  Transmission Date: 20130627
  Serious: No
  Sender: FDA-Public Use
  Company Number: US-009507513-1211USA011769

PATIENT
  Age: 55 Year
  Sex: Male

DRUGS (12)
  1. ZOCOR [Suspect]
     Indication: BLOOD CHOLESTEROL INCREASED
     Dosage: 1 DF, UNK
     Route: 048
     Dates: start: 201011
  2. ZOCOR [Suspect]
     Dosage: 0.5 DF, qm
     Route: 048
  3. ZOCOR [Suspect]
     Dosage: 0.5 DF, hs
     Route: 048
  4. METOPROLOL [Concomitant]
  5. NEXIUM [Concomitant]
  6. ASPIRIN [Concomitant]
  7. METFORMIN [Concomitant]
  8. CYANOCOBALAMIN [Concomitant]
  9. VITAMINS (UNSPECIFIED) [Concomitant]
  10. OMEGA-3 MARINE TRIGLYCERIDES [Concomitant]
  11. ASCORBIC ACID [Concomitant]
  12. SIMVASTATIN [Suspect]
     Route: 048

REACTIONS (9)
  - Drug intolerance [Unknown]
  - Asthenia [Unknown]
  - Abdominal discomfort [Unknown]
  - Wrong technique in drug usage process [Unknown]
  - Inappropriate schedule of drug administration [Unknown]
  - Drug intolerance [Unknown]
  - Malaise [Unknown]
  - Asthenia [Unknown]
  - Abdominal discomfort [Unknown]
